FAERS Safety Report 7671639-5 (Version None)
Quarter: 2011Q3

REPORT INFORMATION
  Report Type: 
  Country: None (occurrence: None)
  Receive Date: 20110726
  Receipt Date: 20110711
  Transmission Date: 20111222
  Serious: Yes (Other)
  Sender: FDA-Public Use
  Company Number: AEUSA201100181

PATIENT
  Age: 54 Year
  Sex: Female

DRUGS (2)
  1. GAMUNEX [Suspect]
     Indication: IMMUNODEFICIENCY COMMON VARIABLE
     Dosage: 40 GM; QM; IV
     Route: 042
     Dates: start: 20100625, end: 20110215
  2. GAMUNEX [Suspect]
     Indication: SELECTIVE IGG SUBCLASS DEFICIENCY
     Dosage: 40 GM; QM; IV
     Route: 042
     Dates: start: 20100625, end: 20110215

REACTIONS (6)
  - BACK PAIN [None]
  - ARTHRALGIA [None]
  - VEIN DISORDER [None]
  - PAIN [None]
  - LEUKOPENIA [None]
  - POOR VENOUS ACCESS [None]
